FAERS Safety Report 7057019-4 (Version None)
Quarter: 2010Q4

REPORT INFORMATION
  Report Type: 
  Country: None (occurrence: None)
  Receive Date: 20101022
  Receipt Date: 20101004
  Transmission Date: 20110411
  Serious: Yes (Other)
  Sender: FDA-Public Use
  Company Number: US-BAYER-201024206NA

PATIENT
  Age: 26 Year
  Sex: Female
  Weight: 80 kg

DRUGS (13)
  1. YAZ [Suspect]
     Indication: PRODUCT USED FOR UNKNOWN INDICATION
     Route: 048
     Dates: start: 20070401, end: 20090601
  2. YAZ [Suspect]
     Dosage: YAZ REFILLED ACCORDING PHARMACY RECORDS
     Route: 048
     Dates: start: 20080627, end: 20081209
  3. YAZ [Suspect]
     Dosage: YAZ REFILLED ACCORDING PHARMACY RECORDS
     Route: 048
     Dates: start: 20090109, end: 20090629
  4. IBUPROFEN [Concomitant]
  5. CYCLOBENZAPRINE [Concomitant]
  6. METRONIDAZOLE [Concomitant]
  7. PROPOXYPHENE NAPSYLATE AND ACETAMINOPHEN [Concomitant]
  8. KETOCONAZOLE [Concomitant]
  9. HYDROCODONE [Concomitant]
     Dosage: DOSING: 5/50 AND 7.5/650
  10. PROMETHAZINE [Concomitant]
  11. ACETAMINOPHEN W/ CODEINE [Concomitant]
  12. MEPERITAB [Concomitant]
  13. FAMATODINE [Concomitant]

REACTIONS (5)
  - ABDOMINAL PAIN [None]
  - CHOLECYSTITIS CHRONIC [None]
  - EMOTIONAL DISTRESS [None]
  - NAUSEA [None]
  - VOMITING [None]
